FAERS Safety Report 14360154 (Version 2)
Quarter: 2018Q1

REPORT INFORMATION
  Report Type: Spontaneous
  Country: FR (occurrence: FR)
  Receive Date: 20180106
  Receipt Date: 20180119
  Transmission Date: 20180509
  Serious: Yes (Hospitalization, Other)
  Sender: FDA-Public Use
  Company Number: FR-AUROBINDO-AUR-APL-2018-000648

PATIENT
  Sex: Female
  Weight: .86 kg

DRUGS (6)
  1. LOVENOX [Suspect]
     Active Substance: ENOXAPARIN SODIUM
     Indication: EMBOLISM VENOUS
     Dosage: 1.6 ML, DAILY
     Route: 064
     Dates: start: 20170415, end: 20170930
  2. ELIQUIS [Suspect]
     Active Substance: APIXABAN
     Indication: PRODUCT USED FOR UNKNOWN INDICATION
  3. PANTOPRAZOLE [Suspect]
     Active Substance: PANTOPRAZOLE
     Indication: MALLORY-WEISS SYNDROME
     Dosage: 20 MG, QD
     Route: 064
     Dates: start: 20170624, end: 20170724
  4. ELIQUIS [Suspect]
     Active Substance: APIXABAN
     Indication: EMBOLISM VENOUS
     Dosage: 2 DF, QD
     Route: 064
     Dates: start: 20170402, end: 20170415
  5. INNOHEP [Suspect]
     Active Substance: TINZAPARIN SODIUM
     Indication: EMBOLISM VENOUS
     Dosage: 0.7 ML, QD
     Route: 064
     Dates: start: 20170517, end: 20170924
  6. PANTOPRAZOLE [Suspect]
     Active Substance: PANTOPRAZOLE
     Indication: PRODUCT USED FOR UNKNOWN INDICATION

REACTIONS (5)
  - Foetal growth restriction [Recovering/Resolving]
  - Bronchopulmonary dysplasia [Recovering/Resolving]
  - Retinopathy [Unknown]
  - Premature baby [Recovering/Resolving]
  - Foetal exposure during pregnancy [Unknown]

NARRATIVE: CASE EVENT DATE: 20170922
